FAERS Safety Report 7650286-5 (Version None)
Quarter: 2011Q3

REPORT INFORMATION
  Report Type: 
  Country: None (occurrence: None)
  Receive Date: 20110802
  Receipt Date: 20110725
  Transmission Date: 20111222
  Serious: Yes (Death)
  Sender: FDA-Public Use
  Company Number: US-CUBIST-2011S1000482

PATIENT

DRUGS (1)
  1. CUBICIN [Suspect]
     Indication: BACTERAEMIA
     Route: 065

REACTIONS (2)
  - DEATH [None]
  - ANTIMICROBIAL SUSCEPTIBILITY TEST RESISTANT [None]
